FAERS Safety Report 6126016-5 (Version None)
Quarter: 2009Q1

REPORT INFORMATION
  Report Type: 
  Country: None (occurrence: None)
  Receive Date: 20090318
  Receipt Date: 20090303
  Transmission Date: 20090719
  Serious: Yes (Other)
  Sender: FDA-Public Use
  Company Number: DSA_33314_2009

PATIENT
  Sex: Male

DRUGS (19)
  1. LORAZEPAM [Suspect]
     Indication: SCHIZOAFFECTIVE DISORDER
     Dosage: (0.5 MG QD ORAL)
     Route: 048
     Dates: start: 20081006, end: 20081118
  2. MIRTAZAPINE [Suspect]
     Indication: SCHIZOAFFECTIVE DISORDER
     Dosage: (45 MG QD ORAL)
     Route: 048
     Dates: start: 20080930
  3. NE11062008UROCIL /00038602/ (NEUROCIL LEVOMEPROMAZINE MALEATE) (NOT SP [Suspect]
     Indication: SCHIZOAFFECTIVE DISORDER
     Dosage: (25 MG QD ORAL)
     Route: 048
     Dates: start: 20081106
  4. SEROQUEL [Suspect]
     Dosage: SEE IMAGE
     Route: 048
     Dates: start: 20081024, end: 20081104
  5. SEROQUEL [Suspect]
     Dosage: SEE IMAGE
     Route: 048
     Dates: start: 20081105, end: 20081105
  6. SEROQUEL [Suspect]
     Dosage: SEE IMAGE
     Route: 048
     Dates: start: 20081106, end: 20081106
  7. SEROQUEL [Suspect]
     Dosage: SEE IMAGE
     Route: 048
     Dates: start: 20081107, end: 20081109
  8. SEROQUEL [Suspect]
     Dosage: SEE IMAGE
     Route: 048
     Dates: start: 20081110, end: 20081110
  9. SEROQUEL [Suspect]
     Dosage: SEE IMAGE
     Route: 048
     Dates: start: 20081111, end: 20081111
  10. SEROQUEL [Suspect]
     Dosage: SEE IMAGE
     Route: 048
     Dates: start: 20081112, end: 20081112
  11. SEROQUEL [Suspect]
     Dosage: SEE IMAGE
     Route: 048
     Dates: start: 20081113, end: 20081116
  12. SEROQUEL [Suspect]
     Dosage: SEE IMAGE
     Route: 048
     Dates: start: 20081117, end: 20081118
  13. SEROQUEL [Suspect]
     Dosage: SEE IMAGE
     Route: 048
     Dates: start: 20081119, end: 20081124
  14. SEROQUEL [Suspect]
     Dosage: SEE IMAGE
     Route: 048
     Dates: start: 20081125, end: 20081125
  15. SEROQUEL [Suspect]
     Dosage: SEE IMAGE
     Route: 048
     Dates: start: 20081126, end: 20081126
  16. SEROQUEL [Suspect]
     Dosage: SEE IMAGE
     Route: 048
     Dates: start: 20081127, end: 20081127
  17. SEROQUEL [Suspect]
     Dosage: SEE IMAGE
     Route: 048
     Dates: start: 20081128, end: 20081128
  18. SEROQUEL [Suspect]
     Dosage: SEE IMAGE
     Route: 048
     Dates: start: 20081129, end: 20081129
  19. ZYPREXA [Suspect]
     Indication: SCHIZOAFFECTIVE DISORDER
     Dosage: (10 MG QD ORAL)
     Route: 048
     Dates: start: 20081008

REACTIONS (3)
  - DRUG INTERACTION [None]
  - DYSURIA [None]
  - URINARY RETENTION [None]
